FAERS Safety Report 17365606 (Version 1)
Quarter: 2020Q1

REPORT INFORMATION
  Report Type: Spontaneous
  Country: GB (occurrence: GB)
  Receive Date: 20200204
  Receipt Date: 20200204
  Transmission Date: 20200409
  Serious: Yes (Hospitalization, Other)
  Sender: FDA-Public Use
  Company Number: GB-MYLANLABS-2020M1011629

PATIENT
  Age: 55 Year
  Sex: Female

DRUGS (2)
  1. RAMIPRIL. [Concomitant]
     Active Substance: RAMIPRIL
     Indication: HYPERTENSION
  2. SERTRALINE [Suspect]
     Active Substance: SERTRALINE HYDROCHLORIDE
     Indication: MENOPAUSAL SYMPTOMS
     Dates: start: 20191108, end: 20191119

REACTIONS (5)
  - Hypotension [Unknown]
  - Vomiting [Unknown]
  - Acute kidney injury [Unknown]
  - Gastroenteritis [Recovered/Resolved]
  - Diarrhoea [Unknown]
